FAERS Safety Report 21270611 (Version 1)
Quarter: 2022Q3

REPORT INFORMATION
  Report Type: Spontaneous
  Country: US (occurrence: None)
  Receive Date: 20220829
  Receipt Date: 20220829
  Transmission Date: 20221026
  Serious: Yes (Death)
  Sender: FDA-Public Use
  Company Number: None

PATIENT
  Age: 39 Year
  Sex: Female

DRUGS (1)
  1. AMBRISENTAN [Suspect]
     Active Substance: AMBRISENTAN
     Indication: Pulmonary arterial hypertension
     Dosage: FREQUENCY : DAILY;?
     Route: 048
     Dates: start: 20180409, end: 20220827

REACTIONS (17)
  - Alcohol withdrawal syndrome [None]
  - Paranoia [None]
  - Insomnia [None]
  - Respiratory failure [None]
  - Respiratory alkalosis [None]
  - Pneumonia [None]
  - Lung infiltration [None]
  - Hypervolaemia [None]
  - Polyuria [None]
  - Cardiac failure congestive [None]
  - Paravalvular regurgitation [None]
  - Oxygen saturation decreased [None]
  - Lethargy [None]
  - Communication disorder [None]
  - Agitation [None]
  - Hallucination [None]
  - Aspiration [None]

NARRATIVE: CASE EVENT DATE: 20220829
